FAERS Safety Report 5086406-9 (Version None)
Quarter: 2006Q3

REPORT INFORMATION
  Report Type: 
  Country: None (occurrence: None)
  Receive Date: 20060821
  Receipt Date: 20060821
  Transmission Date: 20061208
  Serious: No
  Sender: FDA-Public Use
  Company Number: None

PATIENT

DRUGS (8)
  1. TRICOR [Suspect]
     Dosage: TABLET
  2. TRICOR [Suspect]
     Dosage: TABLET
  3. TRIGLIDE [Suspect]
     Dosage: TABLET
  4. TRIGLIDE [Suspect]
     Dosage: TABLET
  5. ANTARA (MICRONIZED) [Suspect]
     Dosage: CAPSULE
  6. ANTARA (MICRONIZED) [Suspect]
     Dosage: CAPSULE
  7. LOFIBRA FENOFIBRATE [Suspect]
     Dosage: TABLET
  8. LOFIBRA FENOFIBRATE [Suspect]
     Dosage: TABLET

REACTIONS (1)
  - MEDICATION ERROR [None]
